FAERS Safety Report 6467151-1 (Version None)
Quarter: 2009Q4

REPORT INFORMATION
  Report Type: 
  Country: None (occurrence: None)
  Receive Date: 20091125
  Receipt Date: 20091116
  Transmission Date: 20100525
  Serious: Yes (Death, Hospitalization)
  Sender: FDA-Public Use
  Company Number: 91085

PATIENT
  Age: 18 Year
  Sex: Female

DRUGS (1)
  1. PROCHLORPERAZINE EDISYLATE [Suspect]
     Indication: NAUSEA
     Dosage: 5MG/X1/INTRAMUCUALR
     Route: 030
     Dates: start: 20091110

REACTIONS (3)
  - CARDIO-RESPIRATORY ARREST [None]
  - HYPOTENSION [None]
  - SINUS TACHYCARDIA [None]
